FAERS Safety Report 5122594-3 (Version None)
Quarter: 2006Q4

REPORT INFORMATION
  Report Type: 
  Country: None (occurrence: None)
  Receive Date: 20061004
  Receipt Date: 20060925
  Transmission Date: 20070319
  Serious: Yes (Other)
  Sender: FDA-Public Use
  Company Number: SPV1-2006-00839

PATIENT
  Age: 61 Year
  Sex: Male

DRUGS (2)
  1. XAGRID (ANAGRELIDE  HYDROCHLORIDE)CAPSULE [Suspect]
     Indication: ESSENTIAL THROMBOCYTHAEMIA
     Dosage: 0.5 MG, 2X/DAY:BID, ORAL
     Route: 048
     Dates: start: 20060531
  2. HYDREA [Concomitant]

REACTIONS (7)
  - DISEASE PROGRESSION [None]
  - HEADACHE [None]
  - LEUKOCYTOSIS [None]
  - MYELOCYTOSIS [None]
  - MYELOFIBROSIS [None]
  - NEUTROPHIL COUNT INCREASED [None]
  - SPLENOMEGALY [None]
